FAERS Safety Report 6706559-3 (Version None)
Quarter: 2010Q2

REPORT INFORMATION
  Report Type: 
  Country: None (occurrence: None)
  Receive Date: 20100503
  Receipt Date: 20100423
  Transmission Date: 20101027
  Serious: Yes (Hospitalization)
  Sender: FDA-Public Use
  Company Number: GB-ASTRAZENECA-2010SE18405

PATIENT
  Age: 73 Year
  Sex: Female

DRUGS (4)
  1. OMEPRAZOLE [Suspect]
     Indication: BARRETT'S OESOPHAGUS
     Dosage: 20-40 MG DAILY
     Dates: start: 19990101
  2. OMEPRAZOLE [Suspect]
     Dosage: 20-40 MG DAILY
     Dates: start: 19990101
  3. BENDROFLUMETHIAZIDE [Concomitant]
     Indication: HYPERTENSION
     Dates: start: 20010101
  4. FUROSEMIDE [Concomitant]
     Indication: HYPERTENSION
     Dosage: 20-40 MG O.D
     Dates: start: 20050101

REACTIONS (2)
  - HYPOCALCAEMIA [None]
  - HYPOMAGNESAEMIA [None]
